FAERS Safety Report 4941243-8 (Version None)
Quarter: 2006Q1

REPORT INFORMATION
  Report Type: 
  Country: None (occurrence: None)
  Receive Date: 20060310
  Receipt Date: 20060310
  Transmission Date: 20060701
  Serious: No
  Sender: FDA-Public Use
  Company Number: None

PATIENT
  Age: 46 Year
  Sex: Female
  Weight: 90.7194 kg

DRUGS (1)
  1. VANIQA [Suspect]
     Indication: HYPERTRICHOSIS
     Dosage: .5G BID TRANSDERMAL
     Route: 062
     Dates: start: 20050810, end: 20060309

REACTIONS (4)
  - CONDITION AGGRAVATED [None]
  - DRUG INEFFECTIVE [None]
  - HYPERTRICHOSIS [None]
  - PHARMACEUTICAL PRODUCT COMPLAINT [None]
